FAERS Safety Report 7297772-8 (Version None)
Quarter: 2011Q1

REPORT INFORMATION
  Report Type: 
  Country: None (occurrence: None)
  Receive Date: 20110214
  Receipt Date: 20110214
  Transmission Date: 20110831
  Serious: Yes (Other)
  Sender: FDA-Public Use
  Company Number: None

PATIENT
  Age: 41 Year
  Sex: Female
  Weight: 58.9676 kg

DRUGS (2)
  1. RANITIDINE [Suspect]
     Indication: GASTROOESOPHAGEAL REFLUX DISEASE
     Dosage: 300 MG TWICE A DAY PO
     Route: 048
  2. RANITIDINE [Suspect]
     Indication: BARRETT'S OESOPHAGUS
     Dosage: 300 MG TWICE A DAY PO
     Route: 048

REACTIONS (10)
  - GAIT DISTURBANCE [None]
  - PAIN IN EXTREMITY [None]
  - MUSCULAR WEAKNESS [None]
  - AUTOIMMUNE DISORDER [None]
  - TREMOR [None]
  - HYPOAESTHESIA [None]
  - CHEST DISCOMFORT [None]
  - FATIGUE [None]
  - HYPOTENSION [None]
  - BLOOD URINE PRESENT [None]
